FAERS Safety Report 14967958 (Version 2)
Quarter: 2018Q2

REPORT INFORMATION
  Report Type: Spontaneous
  Country: PH (occurrence: PH)
  Receive Date: 20180604
  Receipt Date: 20180607
  Transmission Date: 20180711
  Serious: Yes (Death, Hospitalization)
  Sender: FDA-Public Use
  Company Number: PH-ROCHE-2132197

PATIENT

DRUGS (1)
  1. MABTHERA [Suspect]
     Active Substance: RITUXIMAB
     Indication: PRODUCT USED FOR UNKNOWN INDICATION
     Route: 065

REACTIONS (3)
  - Pyrexia [Fatal]
  - Neutropenia [Fatal]
  - Suspected counterfeit product [Unknown]
